FAERS Safety Report 23103757 (Version 1)
Quarter: 2023Q4

REPORT INFORMATION
  Report Type: Spontaneous
  Country: US (occurrence: US)
  Receive Date: 20231025
  Receipt Date: 20231025
  Transmission Date: 20240110
  Serious: No
  Sender: FDA-Public Use
  Company Number: US-ABBVIE-5462334

PATIENT
  Age: 62 Year
  Sex: Male
  Weight: 95.254 kg

DRUGS (2)
  1. HUMIRA [Suspect]
     Active Substance: ADALIMUMAB
     Indication: Colitis ulcerative
     Dosage: FORM STRENGTH: 40 MG
     Route: 058
     Dates: start: 2021
  2. HYDROCODONE [Concomitant]
     Active Substance: HYDROCODONE
     Indication: Ankylosing spondylitis
     Dosage: TIME INTERVAL: 0.33333333 DAYS

REACTIONS (1)
  - Injection site haemorrhage [Recovered/Resolved]

NARRATIVE: CASE EVENT DATE: 20231019
